FAERS Safety Report 8312117-X (Version None)
Quarter: 2012Q2

REPORT INFORMATION
  Report Type: 
  Country: None (occurrence: None)
  Receive Date: 20120425
  Receipt Date: 20110808
  Transmission Date: 20120825
  Serious: Yes (Other)
  Sender: FDA-Public Use
  Company Number: US-TEVA-US017096

PATIENT
  Sex: Male

DRUGS (4)
  1. RITALIN [Suspect]
     Indication: NARCOLEPSY
     Dosage: 20 MILLIGRAM;
     Route: 048
     Dates: start: 20000301
  2. PROVIGIL [Suspect]
     Indication: NARCOLEPSY
     Dosage: 600 MILLIGRAM;
     Route: 048
     Dates: start: 20000301
  3. PROVIGIL [Suspect]
     Dosage: 400 MILLIGRAM;
     Route: 048
  4. RITALIN [Suspect]
     Indication: NARCOLEPSY
     Dosage: 20 MILLIGRAM;
     Route: 048
     Dates: start: 20000301

REACTIONS (2)
  - DELUSION [None]
  - HALLUCINATIONS, MIXED [None]
